FAERS Safety Report 10642478 (Version 1)
Quarter: 2014Q4

REPORT INFORMATION
  Report Type: Spontaneous
  Country: CA (occurrence: None)
  Receive Date: 20141208
  Receipt Date: 20141208
  Transmission Date: 20150529
  Serious: No
  Sender: FDA-Public Use
  Company Number: None

PATIENT
  Age: 75 Year
  Sex: Female
  Weight: 128 kg

DRUGS (1)
  1. CIPROFLOXACIN. [Suspect]
     Active Substance: CIPROFLOXACIN
     Indication: URINARY TRACT INFECTION
     Dosage: 1 PILL, TWICE DAILY, TAKEN BY MOUTH
     Route: 048
     Dates: start: 20141107, end: 20141113

REACTIONS (6)
  - Feeling abnormal [None]
  - Burning sensation [None]
  - Headache [None]
  - Pain in extremity [None]
  - Muscle spasms [None]
  - Product quality issue [None]

NARRATIVE: CASE EVENT DATE: 20141111
